FAERS Safety Report 5164675-4 (Version None)
Quarter: 2006Q4

REPORT INFORMATION
  Report Type: 
  Country: None (occurrence: None)
  Receive Date: 20061205
  Receipt Date: 20061127
  Transmission Date: 20070319
  Serious: Yes (Hospitalization)
  Sender: FDA-Public Use
  Company Number: US-KINGPHARMUSA00001-K200601515

PATIENT
  Age: 66 Year
  Sex: Female

DRUGS (8)
  1. ALTACE [Suspect]
  2. IRBESARTAN [Suspect]
     Indication: CARDIOVASCULAR EVENT PROPHYLAXIS
     Dosage: 150 MG, QD
     Dates: start: 20040426, end: 20040501
  3. IRBESARTAN [Suspect]
     Dosage: 300 MG, QD
     Dates: start: 20040501, end: 20060601
  4. CLOPIDOGREL [Concomitant]
     Indication: CARDIOVASCULAR EVENT PROPHYLAXIS
     Dosage: 75 MG, UNK
     Dates: start: 20040426
  5. ASPIRIN [Concomitant]
     Indication: CARDIOVASCULAR EVENT PROPHYLAXIS
     Dosage: 80 MG, UNK
     Dates: start: 20040426
  6. KAYEXALATE [Concomitant]
  7. LASIX [Concomitant]
  8. MUCOMYST                           /00082801/ [Concomitant]

REACTIONS (4)
  - BLOOD CREATININE INCREASED [None]
  - HYPERKALAEMIA [None]
  - RENAL ARTERY STENOSIS [None]
  - RENAL FAILURE ACUTE [None]
